FAERS Safety Report 15687354 (Version 1)
Quarter: 2018Q4

REPORT INFORMATION
  Report Type: Spontaneous
  Country: GB (occurrence: GB)
  Receive Date: 20181205
  Receipt Date: 20181205
  Transmission Date: 20190205
  Serious: Yes (Other)
  Sender: FDA-Public Use
  Company Number: GB-ACCORD-094840

PATIENT
  Age: 19 Year
  Sex: Male

DRUGS (4)
  1. PIRENZEPINE/PIRENZEPINE DIHYDROCHLORIDE [Concomitant]
  2. SERTRALINE [Concomitant]
     Active Substance: SERTRALINE HYDROCHLORIDE
     Dosage: IN THE MORNING
  3. CLOZAPINE. [Suspect]
     Active Substance: CLOZAPINE
     Indication: PRODUCT USED FOR UNKNOWN INDICATION
     Dosage: DOSE HAS BEEN REDUCED TO 250 MG/DAY
     Route: 048
  4. DOCUSATE [Concomitant]
     Active Substance: DOCUSATE
     Dosage: AT NIGHT

REACTIONS (4)
  - Left ventricular hypertrophy [Unknown]
  - Syncope [Recovered/Resolved]
  - Paraesthesia [Recovered/Resolved]
  - Dizziness [Unknown]

NARRATIVE: CASE EVENT DATE: 20180108
